FAERS Safety Report 11792012 (Version 1)
Quarter: 2015Q4

REPORT INFORMATION
  Report Type: Spontaneous
  Country: DE (occurrence: DE)
  Receive Date: 20151201
  Receipt Date: 20151201
  Transmission Date: 20160305
  Serious: Yes (Other)
  Sender: FDA-Public Use
  Company Number: PHHY2015DE155559

PATIENT
  Age: 52 Year
  Sex: Male

DRUGS (3)
  1. METHYLPREDNISOLONE. [Suspect]
     Active Substance: METHYLPREDNISOLONE
     Indication: PACHYMENINGITIS
     Route: 065
  2. PREDNISOLONE. [Concomitant]
     Active Substance: PREDNISOLONE
     Indication: PACHYMENINGITIS
     Dosage: 40 MG, QD
     Route: 048
  3. AZATHIOPRINE. [Concomitant]
     Active Substance: AZATHIOPRINE
     Indication: PACHYMENINGITIS
     Route: 065

REACTIONS (8)
  - Pulmonary embolism [Unknown]
  - Pachymeningitis [Recovered/Resolved]
  - Deep vein thrombosis [Unknown]
  - Disease progression [Recovered/Resolved]
  - Drug effect incomplete [Unknown]
  - Muscular weakness [Unknown]
  - Pneumonia [Unknown]
  - Hyperreflexia [Unknown]
